FAERS Safety Report 9632742 (Version 2)
Quarter: 2013Q4

REPORT INFORMATION
  Report Type: Spontaneous
  Country: US (occurrence: US)
  Receive Date: 20131018
  Receipt Date: 20131018
  Transmission Date: 20140711
  Serious: Yes (Death, Hospitalization)
  Sender: FDA-Public Use
  Company Number: US-DENDREON CORPORATION-2013PROUSA03070

PATIENT
  Age: 73 Year
  Sex: Male

DRUGS (2)
  1. PROVENGE [Suspect]
     Indication: PROSTATE CANCER METASTATIC
     Dosage: 250 ML, SINGLE
     Route: 042
     Dates: start: 20130715, end: 20130715
  2. PROVENGE [Suspect]
     Dosage: 250 ML, SINGLE
     Route: 042
     Dates: start: 20130729, end: 20130729

REACTIONS (2)
  - Death [Fatal]
  - Hospitalisation [Unknown]
